FAERS Safety Report 17119385 (Version 2)
Quarter: 2019Q4

REPORT INFORMATION
  Report Type: Report from Study
  Country: IE (occurrence: IE)
  Receive Date: 20191206
  Receipt Date: 20191210
  Transmission Date: 20200122
  Serious: Yes (Other)
  Sender: FDA-Public Use
  Company Number: IE-PFIZER INC-2019518052

PATIENT
  Age: 68 Year
  Sex: Male

DRUGS (9)
  1. XATRAL [ALFUZOSIN HYDROCHLORIDE] [Concomitant]
     Active Substance: ALFUZOSIN
     Route: 065
  2. ATORVASTATIN [Concomitant]
     Active Substance: ATORVASTATIN
     Route: 065
  3. VANCOMYCIN HYDROCHLORIDE. [Suspect]
     Active Substance: VANCOMYCIN HYDROCHLORIDE
     Indication: POSTOPERATIVE WOUND INFECTION
     Route: 042
     Dates: start: 20191018, end: 20191103
  4. KEPPRA [Concomitant]
     Active Substance: LEVETIRACETAM
     Route: 065
  5. ASPIRIN [ACETYLSALICYLIC ACID] [Concomitant]
     Active Substance: ASPIRIN
     Route: 065
  6. LERCANIDIPINE [Concomitant]
     Active Substance: LERCANIDIPINE
     Route: 065
  7. VALSARTAN. [Concomitant]
     Active Substance: VALSARTAN
     Route: 065
  8. ALLOPURINOL. [Concomitant]
     Active Substance: ALLOPURINOL
     Route: 065
  9. PANTOPRAZOLE [Concomitant]
     Active Substance: PANTOPRAZOLE
     Route: 065

REACTIONS (5)
  - Hypoaesthesia [Recovered/Resolved]
  - Facial paralysis [Recovered/Resolved]
  - Dysarthria [Recovered/Resolved]
  - Incorrect dose administered [Unknown]
  - Product complaint [Recovered/Resolved]

NARRATIVE: CASE EVENT DATE: 20191031
